FAERS Safety Report 5423916-6 (Version None)
Quarter: 2007Q3

REPORT INFORMATION
  Report Type: 
  Country: None (occurrence: None)
  Receive Date: 20070823
  Receipt Date: 20070810
  Transmission Date: 20080115
  Serious: Yes (Other)
  Sender: FDA-Public Use
  Company Number: DK-ELI_LILLY_AND_COMPANY-DK200708002151

PATIENT
  Age: 9 Year
  Sex: Male
  Weight: 35 kg

DRUGS (3)
  1. STRATTERA [Suspect]
     Indication: ATTENTION DEFICIT/HYPERACTIVITY DISORDER
     Dosage: 25 MG, 2/D
     Route: 048
     Dates: start: 20060101
  2. STRATTERA [Suspect]
     Dosage: 1.1 MG/KG, DAILY (1/D)
     Route: 048
     Dates: end: 20060101
  3. STRATTERA [Suspect]
     Dosage: UNK MG, UNKNOWN
     Route: 065

REACTIONS (3)
  - DEPRESSED MOOD [None]
  - INTENTIONAL SELF-INJURY [None]
  - SUICIDAL IDEATION [None]
